FAERS Safety Report 17960541 (Version 1)
Quarter: 2020Q2

REPORT INFORMATION
  Report Type: Report from Study
  Country: None (occurrence: US)
  Receive Date: 20200630
  Receipt Date: 20200630
  Transmission Date: 20200714
  Serious: No
  Sender: FDA-Public Use
  Company Number: US-BIOVITRUM-2019US1219

PATIENT
  Sex: Female

DRUGS (1)
  1. KINERET [Suspect]
     Active Substance: ANAKINRA
     Indication: PRODUCT USED FOR UNKNOWN INDICATION
     Route: 058
     Dates: start: 20190519

REACTIONS (6)
  - Diarrhoea [Not Recovered/Not Resolved]
  - Injection site bruising [Unknown]
  - Headache [Not Recovered/Not Resolved]
  - Injection site haemorrhage [Unknown]
  - Pruritus [Unknown]
  - Injection site erythema [Unknown]
